FAERS Safety Report 9238509 (Version 2)
Quarter: 2013Q2

REPORT INFORMATION
  Report Type: Spontaneous
  Country: BR (occurrence: BR)
  Receive Date: 20130418
  Receipt Date: 20130418
  Transmission Date: 20140414
  Serious: Yes (Other)
  Sender: FDA-Public Use
  Company Number: PHHY2013BR026415

PATIENT
  Sex: Female

DRUGS (7)
  1. APRESOLINE [Suspect]
     Indication: CARDIAC DISORDER
     Dosage: 3 DF(25MG), DAILY
     Route: 048
  2. APRESOLINE [Suspect]
     Dosage: 1 DF(50MG), DAILY
     Route: 048
  3. ATENOLOL [Suspect]
     Dosage: UNK UKN, UNK
  4. TEBONIN [Concomitant]
     Indication: HYPERTENSION
     Dosage: 1 DF, DAILY
     Route: 048
  5. LABIRIN [Concomitant]
     Indication: LABYRINTHITIS
     Dosage: 1 DF(25MG), QD (AT NIGHT)
     Route: 048
  6. TAMARINE [Concomitant]
     Dosage: 2 DF, UNK
  7. METAMUCIL [Concomitant]
     Indication: CONSTIPATION
     Dosage: 1 DF, UNK

REACTIONS (1)
  - Skin cancer [Recovered/Resolved]
